FAERS Safety Report 4927738-1 (Version None)
Quarter: 2006Q1

REPORT INFORMATION
  Report Type: 
  Country: None (occurrence: None)
  Receive Date: 20060222
  Receipt Date: 20060209
  Transmission Date: 20060701
  Serious: Yes (Other)
  Sender: FDA-Public Use
  Company Number: USA-2006-0023543

PATIENT
  Age: 41 Year
  Sex: Male

DRUGS (6)
  1. OXYCODONE HCL [Suspect]
     Indication: PAIN
     Dosage: 5 MG, TID
     Dates: start: 20030501, end: 20030901
  2. OXYCODONE HCL [Suspect]
     Indication: PAIN
     Dosage: 5 MG, TID
     Dates: end: 20060101
  3. ZOLOFT [Concomitant]
  4. XANAX [Concomitant]
  5. CLONIDINE [Concomitant]
  6. HYDROCHLOROTHIAZIDE [Concomitant]

REACTIONS (4)
  - DRUG WITHDRAWAL CONVULSIONS [None]
  - FALL [None]
  - HEAD INJURY [None]
  - INSOMNIA [None]
